FAERS Safety Report 12327861 (Version 1)
Quarter: 2016Q2

REPORT INFORMATION
  Report Type: Spontaneous
  Country: US (occurrence: None)
  Receive Date: 20160502
  Receipt Date: 20160502
  Transmission Date: 20160815
  Serious: Yes (Life-Threatening)
  Sender: FDA-Public Use
  Company Number: None

PATIENT
  Age: 74 Year
  Sex: Male
  Weight: 80.5 kg

DRUGS (1)
  1. BACITRACIN. [Suspect]
     Active Substance: BACITRACIN
     Indication: POSTOPERATIVE CARE
     Dates: start: 20160415, end: 20160415

REACTIONS (5)
  - Rash [None]
  - Swelling face [None]
  - Rash erythematous [None]
  - Angioedema [None]
  - Hypotension [None]

NARRATIVE: CASE EVENT DATE: 20160415
